FAERS Safety Report 9677489 (Version 1)
Quarter: 2013Q4

REPORT INFORMATION
  Report Type: Report from Study
  Country: US (occurrence: US)
  Receive Date: 20131108
  Receipt Date: 20131108
  Transmission Date: 20140711
  Serious: Yes (Hospitalization)
  Sender: FDA-Public Use
  Company Number: PHEH2013US023273

PATIENT
  Age: 66 Year
  Sex: Male

DRUGS (9)
  1. AFINITOR [Suspect]
     Indication: RENAL CANCER
     Dosage: 05 MG, QD
     Route: 048
     Dates: start: 20130506
  2. AFINITOR [Suspect]
     Dosage: 10 MG, UNK
  3. LEVEMIR [Concomitant]
     Dates: start: 20130710
  4. LEVOFLOXACIN [Concomitant]
  5. FLORANEX [Concomitant]
     Dates: start: 20130510
  6. CLOPIDOGREL [Concomitant]
     Dates: start: 20130516
  7. SIMVASTATIN [Concomitant]
  8. DICYCLOMINE [Concomitant]
     Dates: start: 20130809
  9. PIOGLITAZONE [Concomitant]

REACTIONS (5)
  - Intestinal obstruction [Not Recovered/Not Resolved]
  - Tongue disorder [Not Recovered/Not Resolved]
  - Dizziness [Not Recovered/Not Resolved]
  - Abdominal discomfort [Not Recovered/Not Resolved]
  - Pneumonia aspiration [Not Recovered/Not Resolved]
